FAERS Safety Report 11570116 (Version 1)
Quarter: 2015Q3

REPORT INFORMATION
  Report Type: Spontaneous
  Country: US (occurrence: US)
  Receive Date: 20150916
  Receipt Date: 20150916
  Transmission Date: 20151125
  Serious: No
  Sender: FDA-Public Use
  Company Number: US-ELI_LILLY_AND_COMPANY-US200908006719

PATIENT
  Age: 61 Year
  Sex: Female

DRUGS (3)
  1. FORTEO [Suspect]
     Active Substance: TERIPARATIDE
     Dosage: UNK, UNK
     Dates: start: 20090830
  2. FISH OIL [Concomitant]
     Active Substance: FISH OIL
  3. CALCIUM + VITAMIN D [Concomitant]
     Active Substance: CALCIUM\VITAMIN D
     Dosage: 3 D/F, DAILY (1/D)

REACTIONS (5)
  - Abdominal distension [Recovered/Resolved]
  - Drug hypersensitivity [Unknown]
  - Pruritus [Recovered/Resolved]
  - Injection site pruritus [Unknown]
  - Injection site erythema [Unknown]

NARRATIVE: CASE EVENT DATE: 2009
